FAERS Safety Report 9155873 (Version 1)
Quarter: 2013Q1

REPORT INFORMATION
  Report Type: Spontaneous
  Country: US (occurrence: US)
  Receive Date: 20130311
  Receipt Date: 20130311
  Transmission Date: 20140127
  Serious: No
  Sender: FDA-Public Use
  Company Number: US-009507513-1303USA004972

PATIENT
  Sex: Female

DRUGS (1)
  1. CORICIDIN HBP [Suspect]
     Indication: COUGH
     Dosage: UNK, UNKNOWN
     Route: 048
     Dates: start: 2010

REACTIONS (2)
  - Nasopharyngitis [Not Recovered/Not Resolved]
  - Drug ineffective [Unknown]
